FAERS Safety Report 12446086 (Version 1)
Quarter: 2016Q2

REPORT INFORMATION
  Report Type: Spontaneous
  Country: US (occurrence: US)
  Receive Date: 20160608
  Receipt Date: 20160608
  Transmission Date: 20160815
  Serious: Yes (Death, Hospitalization, Other)
  Sender: FDA-Public Use
  Company Number: US-STRIDES ARCOLAB LIMITED-2016SP004399

PATIENT

DRUGS (3)
  1. PRAMOXINE [Suspect]
     Active Substance: PRAMOXINE
     Indication: PRODUCT USED FOR UNKNOWN INDICATION
     Dosage: UNK
  2. IBUPROFEN. [Suspect]
     Active Substance: IBUPROFEN
     Indication: PRODUCT USED FOR UNKNOWN INDICATION
     Dosage: UNK
     Route: 048
  3. MORPHINE [Suspect]
     Active Substance: MORPHINE
     Indication: PRODUCT USED FOR UNKNOWN INDICATION
     Dosage: UNK

REACTIONS (13)
  - Completed suicide [Fatal]
  - Urinary incontinence [Unknown]
  - Sinus tachycardia [Unknown]
  - ECG P wave inverted [Unknown]
  - Renal ischaemia [None]
  - Electrocardiogram ST segment depression [Unknown]
  - Intentional overdose [Unknown]
  - Toxicity to various agents [Fatal]
  - Hypotension [Unknown]
  - Acidosis [Unknown]
  - Pulmonary oedema [None]
  - Unresponsive to stimuli [Unknown]
  - Oliguria [Unknown]
